FAERS Safety Report 23365428 (Version 1)
Quarter: 2024Q1

REPORT INFORMATION
  Report Type: Spontaneous
  Country: US (occurrence: None)
  Receive Date: 20240103
  Receipt Date: 20240103
  Transmission Date: 20240410
  Serious: Yes (Other)
  Sender: FDA-Public Use
  Company Number: None

PATIENT
  Age: 54 Year
  Sex: Female
  Weight: 58.5 kg

DRUGS (2)
  1. ASTEPRO [Suspect]
     Active Substance: AZELASTINE HYDROCHLORIDE
     Indication: Seasonal allergy
     Dosage: OTHER QUANTITY : 1 DROP(S);?FREQUENCY : AT BEDTIME;?OTHER ROUTE : NASAL SPRAY;?
     Route: 050
     Dates: start: 20231201, end: 20240103
  2. VITAMINS [Concomitant]
     Active Substance: VITAMINS

REACTIONS (2)
  - Skin exfoliation [None]
  - Rhinalgia [None]

NARRATIVE: CASE EVENT DATE: 20240102
